FAERS Safety Report 22312887 (Version 1)
Quarter: 2023Q2

REPORT INFORMATION
  Report Type: Spontaneous
  Country: US (occurrence: US)
  Receive Date: 20230512
  Receipt Date: 20230512
  Transmission Date: 20230721
  Serious: No
  Sender: FDA-Public Use
  Company Number: US-THE RITEDOSE CORPORATION-2023RIT000017

PATIENT

DRUGS (4)
  1. LEVALBUTEROL [Suspect]
     Active Substance: LEVALBUTEROL
     Indication: Chronic obstructive pulmonary disease
     Dosage: 0.63 MILLIGRAM
     Route: 055
  2. LEVALBUTEROL [Suspect]
     Active Substance: LEVALBUTEROL
     Indication: Asthma
     Dosage: 1.25 MILLIGRAM
  3. LEVALBUTEROL [Suspect]
     Active Substance: LEVALBUTEROL
     Indication: Cystic fibrosis
  4. XOPENEX [Concomitant]
     Active Substance: LEVALBUTEROL HYDROCHLORIDE
     Indication: Product used for unknown indication
     Dosage: UNK

REACTIONS (5)
  - General physical health deterioration [Unknown]
  - Tremor [Unknown]
  - Heart rate increased [Unknown]
  - Insomnia [Unknown]
  - Product dose omission issue [Unknown]
